FAERS Safety Report 4786853-6 (Version None)
Quarter: 2005Q3

REPORT INFORMATION
  Report Type: 
  Country: None (occurrence: None)
  Receive Date: 20050930
  Receipt Date: 20050922
  Transmission Date: 20060218
  Serious: Yes (Other)
  Sender: FDA-Public Use
  Company Number: 2005133148

PATIENT
  Age: 26 Year
  Sex: Male

DRUGS (2)
  1. GEODON [Suspect]
     Indication: ILL-DEFINED DISORDER
     Dates: start: 20050901, end: 20050901
  2. TRAZODONE HCL [Suspect]
     Indication: INSOMNIA
     Dates: start: 20050901

REACTIONS (2)
  - FALL [None]
  - INSOMNIA [None]
